FAERS Safety Report 8787290 (Version 1)
Quarter: 2012Q4

REPORT INFORMATION
  Report Type: Report from Study
  Country: US (occurrence: US)
  Receive Date: 20120914
  Receipt Date: 20120914
  Transmission Date: 20130627
  Serious: No
  Sender: FDA-Public Use
  Company Number: US-VERTEX PHARMACEUTICAL INC.-AE-2012-009425

PATIENT
  Sex: Female

DRUGS (3)
  1. INCIVEK [Suspect]
     Indication: HEPATITIS C
     Route: 048
     Dates: start: 20120613
  2. RIBASPHERE [Concomitant]
     Indication: HEPATITIS C
     Route: 048
     Dates: start: 20120613
  3. PEGASYS [Concomitant]
     Indication: HEPATITIS C
     Route: 058
     Dates: start: 20120613

REACTIONS (10)
  - Depression [Unknown]
  - Hypoaesthesia [Unknown]
  - Pain [Unknown]
  - Feeling of body temperature change [Unknown]
  - Chills [Unknown]
  - Cold sweat [Unknown]
  - Fatigue [Unknown]
  - Rash [Unknown]
  - Pruritus generalised [Unknown]
  - Nausea [Unknown]
